FAERS Safety Report 20222503 (Version 2)
Quarter: 2022Q1

REPORT INFORMATION
  Report Type: Spontaneous
  Country: US (occurrence: US)
  Receive Date: 20211223
  Receipt Date: 20220113
  Transmission Date: 20220423
  Serious: Yes (Other)
  Sender: FDA-Public Use
  Company Number: US-TEVA-2021-US-1989770

PATIENT
  Age: 48 Year
  Sex: Male

DRUGS (1)
  1. OMEPRAZOLE [Suspect]
     Active Substance: OMEPRAZOLE
     Indication: Abdominal pain
     Dosage: 40 MILLIGRAM DAILY;
     Route: 065

REACTIONS (4)
  - Strongyloidiasis [Unknown]
  - Weight decreased [Unknown]
  - Chronic gastritis [Unknown]
  - Gastric xanthoma [Unknown]
